FAERS Safety Report 16617333 (Version 2)
Quarter: 2019Q3

REPORT INFORMATION
  Report Type: Spontaneous
  Country: US (occurrence: US)
  Receive Date: 20190723
  Receipt Date: 20190724
  Transmission Date: 20191004
  Serious: Yes (Hospitalization, Other)
  Sender: FDA-Public Use
  Company Number: US-MYLANLABS-2019M1067994

PATIENT
  Age: 72 Year
  Sex: Male

DRUGS (2)
  1. CISPLATIN. [Suspect]
     Active Substance: CISPLATIN
     Indication: TRANSITIONAL CELL CARCINOMA
     Dosage: RECEIVED THREE CYCLES
     Route: 065
  2. GEMCITABINE. [Suspect]
     Active Substance: GEMCITABINE
     Indication: TRANSITIONAL CELL CARCINOMA
     Dosage: RECEIVED THREE CYCLES
     Route: 065

REACTIONS (8)
  - Fistula of small intestine [Recovered/Resolved]
  - Dizziness [Unknown]
  - Haematochezia [Unknown]
  - Renal pelvis fistula [Recovered/Resolved]
  - Gastrointestinal ulcer [Unknown]
  - Gastric disorder [Unknown]
  - Fatigue [Unknown]
  - Anaemia [Unknown]
